FAERS Safety Report 6120113-6 (Version None)
Quarter: 2009Q1

REPORT INFORMATION
  Report Type: 
  Country: None (occurrence: None)
  Receive Date: 20090312
  Receipt Date: 20090227
  Transmission Date: 20090719
  Serious: Yes (Death)
  Sender: FDA-Public Use
  Company Number: B0563428A

PATIENT
  Sex: 0

DRUGS (1)
  1. HYCAMTIN [Suspect]
     Indication: MYELODYSPLASTIC SYNDROME
     Dosage: 1.2 MG/M2 / SEE DOSAGE TEXT / ORAL
     Route: 048

REACTIONS (1)
  - FEBRILE NEUTROPENIA [None]
